FAERS Safety Report 20656925 (Version 2)
Quarter: 2022Q2

REPORT INFORMATION
  Report Type: Report from Study
  Country: US (occurrence: US)
  Receive Date: 20220331
  Receipt Date: 20220510
  Transmission Date: 20220721
  Serious: Yes (Hospitalization, Other)
  Sender: FDA-Public Use
  Company Number: US-ABBVIE-22K-163-4331322-00

PATIENT
  Age: 82 Year
  Sex: Female

DRUGS (3)
  1. CREON [Suspect]
     Active Substance: PANCRELIPASE AMYLASE\PANCRELIPASE LIPASE\PANCRELIPASE PROTEASE
     Indication: Pancreatitis chronic
     Dosage: 1 CAPSULE WITH MEALS
     Route: 048
  2. CREON [Suspect]
     Active Substance: PANCRELIPASE AMYLASE\PANCRELIPASE LIPASE\PANCRELIPASE PROTEASE
     Indication: Pancreatic carcinoma
  3. HYDROCHLOROTHIAZIDE [Concomitant]
     Active Substance: HYDROCHLOROTHIAZIDE
     Indication: Product used for unknown indication
     Dosage: 3 TIMES A DAY

REACTIONS (10)
  - Loss of consciousness [Unknown]
  - Renal failure [Unknown]
  - Acute kidney injury [Unknown]
  - Pain [Unknown]
  - Memory impairment [Unknown]
  - Gouty arthritis [Unknown]
  - Nephrolithiasis [Unknown]
  - Musculoskeletal disorder [Recovered/Resolved]
  - Mobility decreased [Recovered/Resolved]
  - Weight decreased [Recovering/Resolving]

NARRATIVE: CASE EVENT DATE: 20220301
